FAERS Safety Report 24378638 (Version 1)
Quarter: 2024Q3

REPORT INFORMATION
  Report Type: Spontaneous
  Country: US (occurrence: US)
  Receive Date: 20240930
  Receipt Date: 20240930
  Transmission Date: 20241016
  Serious: Yes (Hospitalization, Other)
  Sender: Haleon PLC
  Company Number: US-HALEON-2198693

PATIENT
  Age: 61 Year
  Sex: Male

DRUGS (2)
  1. ACETAMINOPHEN [Suspect]
     Active Substance: ACETAMINOPHEN
     Indication: Product used for unknown indication
  2. ETHYLENE GLYCOL [Suspect]
     Active Substance: ETHYLENE GLYCOL
     Indication: Product used for unknown indication

REACTIONS (11)
  - Acute kidney injury [Recovering/Resolving]
  - Chest discomfort [Unknown]
  - Dysarthria [Unknown]
  - Confusional state [Unknown]
  - Fall [Unknown]
  - Mental status changes [Recovering/Resolving]
  - Respiratory distress [Unknown]
  - Metabolic acidosis [Recovered/Resolved]
  - Hypoxia [Unknown]
  - Hyperosmolar state [Recovered/Resolved]
  - Toxicity to various agents [Unknown]
